FAERS Safety Report 5633079-X (Version None)
Quarter: 2008Q1

REPORT INFORMATION
  Report Type: 
  Country: None (occurrence: None)
  Receive Date: 20080221
  Receipt Date: 20080214
  Transmission Date: 20080703
  Serious: Yes (Hospitalization, Other)
  Sender: FDA-Public Use
  Company Number: DE-AVENTIS-200810436DE

PATIENT
  Age: 33 Year
  Sex: Female

DRUGS (36)
  1. CLEXANE [Suspect]
     Indication: THROMBOSIS PROPHYLAXIS
     Route: 058
     Dates: start: 20040911
  2. PANTOZOL                           /01263202/ [Suspect]
     Dosage: DOSE: 1 AMPOULE
     Dates: start: 20040911, end: 20040926
  3. PANTOZOL                           /01263202/ [Suspect]
     Route: 048
     Dates: start: 20040927
  4. UROMITEXAN [Suspect]
     Route: 048
     Dates: start: 20040910, end: 20041011
  5. VALPROATE SODIUM [Suspect]
     Indication: EPILEPSY
     Route: 048
     Dates: start: 20040912
  6. VALPROATE SODIUM [Suspect]
     Dosage: DOSE: 10-0-10
     Route: 048
     Dates: start: 20040923
  7. KENEPHRO [Suspect]
     Route: 042
     Dates: start: 20040911
  8. EUTHYROX [Suspect]
     Indication: HYPOTHYROIDISM
     Dosage: DOSE: 1-0-0
     Route: 048
     Dates: start: 20040918
  9. EUTHYROX [Suspect]
     Dosage: DOSE: 1-0-0
     Route: 048
     Dates: start: 20040918
  10. LORAZEPAM [Suspect]
     Indication: SEDATION
     Dosage: DOSE: 0-0-0-1
     Route: 042
     Dates: start: 20040923
  11. AMPHO-MORONAL [Concomitant]
     Route: 048
     Dates: start: 20040911
  12. AMPHO-MORONAL [Concomitant]
     Route: 048
     Dates: start: 20040917, end: 20040917
  13. LASIX SPECIAL [Concomitant]
     Dosage: DOSE: 800 MG 8 ML/H
     Route: 042
     Dates: start: 20040917, end: 20040917
  14. DISOPRIVAN [Concomitant]
     Indication: SEDATION
     Dosage: DOSE: 2 % 50 ML
     Route: 042
     Dates: start: 20040913, end: 20040918
  15. PASPERTIN [Concomitant]
     Indication: NAUSEA
     Dosage: DOSE: 1-1-1
     Route: 042
     Dates: start: 20040914, end: 20040919
  16. BENZODIAZEPINE DERIVATIVES [Concomitant]
     Indication: ENDOTRACHEAL INTUBATION
     Dosage: DOSE: 90 MG / 50 ML; FREQUENCY: IRREGULAR
     Route: 042
     Dates: start: 20040917, end: 20040923
  17. FENTANYL [Concomitant]
     Dosage: DOSE: 1.5 G / 50 ML
     Route: 042
     Dates: start: 20040917, end: 20040923
  18. NOREPINEPHRINE BITARTRATE [Concomitant]
     Indication: ENDOTRACHEAL INTUBATION
     Dosage: DOSE: 1 X 12.5 MG / 50 ML
     Route: 042
     Dates: start: 20040914, end: 20040925
  19. CEFTRIAXON [Concomitant]
     Indication: SEPSIS
     Route: 042
     Dates: start: 20040911, end: 20040926
  20. TRACUTIL                           /01597201/ [Concomitant]
     Dosage: DOSE: 1 AMPOULE
     Route: 042
     Dates: start: 20040914, end: 20040926
  21. FLUCLOXACILLIN [Concomitant]
     Indication: SEPSIS
     Route: 042
     Dates: start: 20040915, end: 20040927
  22. GLUCOSE 40% [Concomitant]
     Route: 042
     Dates: start: 20040902, end: 20040930
  23. ENDOXAN [Concomitant]
     Dosage: DOSE: 200 MG / 150 MG
     Route: 048
     Dates: start: 20040910, end: 20040926
  24. ENDOXAN [Concomitant]
     Dosage: DOSE: 200 MG / 150 MG
     Route: 048
     Dates: start: 20040928, end: 20041002
  25. CERNEVIT                           /01027001/ [Concomitant]
     Indication: HYPOVITAMINOSIS
     Dosage: DOSE: ONE AMPOULE
     Route: 042
     Dates: start: 20040914, end: 20041002
  26. PREDNISOLONE [Concomitant]
     Dosage: DOSE: 300MG 150MG 125MG
     Route: 042
     Dates: start: 20040908, end: 20041003
  27. DEPO-CLINOVIR [Concomitant]
     Indication: CONTRACEPTION
     Dosage: DOSE: 1X FOR THREE MONTHS
     Route: 030
     Dates: start: 20040601
  28. INSUMAN RAPID [Concomitant]
     Dosage: DOSE: 3 IU / 5 IU
     Route: 058
     Dates: start: 20040918, end: 20040920
  29. INSUMAN RAPID [Concomitant]
     Dosage: DOSE: 3 IU / 5 IU
     Route: 058
     Dates: start: 20040923, end: 20040928
  30. KONAKION [Concomitant]
     Dosage: DOSE: ONE AMPOULE
     Route: 042
     Dates: start: 20040919, end: 20040928
  31. FUROSEMIDE [Concomitant]
     Route: 042
     Dates: start: 20040921, end: 20040922
  32. MORPHINE [Concomitant]
     Indication: PAIN
     Dosage: DOSE: 0.5 AMPOULE
     Route: 042
     Dates: start: 20040923, end: 20040929
  33. CLONT                              /00012501/ [Concomitant]
     Dates: start: 20040924, end: 20040930
  34. PROMETHAZINE [Concomitant]
     Indication: SEDATION
     Dosage: DOSE: 0-0-0-10
     Route: 048
     Dates: start: 20040926, end: 20041003
  35. KALINOR-BRAUSETABLETTEN [Concomitant]
     Dosage: DOSE: 1-0-0
     Route: 048
     Dates: start: 20040928, end: 20041013
  36. ACETAMINOPHEN [Concomitant]
     Dates: start: 20041001, end: 20041001

REACTIONS (6)
  - BLISTER [None]
  - CONJUNCTIVITIS [None]
  - LIP EROSION [None]
  - MUCOSAL EROSION [None]
  - SKIN DISORDER [None]
  - STEVENS-JOHNSON SYNDROME [None]
